FAERS Safety Report 10780503 (Version 1)
Quarter: 2015Q1

REPORT INFORMATION
  Report Type: Other
  Country: US (occurrence: US)
  Receive Date: 20150210
  Receipt Date: 20150210
  Transmission Date: 20150721
  Serious: Yes (Death)
  Sender: FDA-Public Use
  Company Number: US-FRI-1000074432

PATIENT
  Age: 44 Year
  Sex: Male

DRUGS (5)
  1. CITALOPRAM [Suspect]
     Active Substance: CITALOPRAM HYDROBROMIDE
  2. COCAINE [Suspect]
     Active Substance: COCAINE
  3. HYDROCODONE [Suspect]
     Active Substance: HYDROCODONE
  4. DOXYLAMINE [Suspect]
     Active Substance: DOXYLAMINE
  5. HEROIN [Suspect]
     Active Substance: DIACETYLMORPHINE

REACTIONS (3)
  - Respiratory arrest [None]
  - Drug abuse [Fatal]
  - Cardiac arrest [None]
